FAERS Safety Report 17404379 (Version 1)
Quarter: 2020Q1

REPORT INFORMATION
  Report Type: Spontaneous
  Country: US (occurrence: US)
  Receive Date: 20200211
  Receipt Date: 20200211
  Transmission Date: 20200409
  Serious: No
  Sender: FDA-Public Use
  Company Number: US-PFIZER INC-2020056664

PATIENT
  Age: 57 Year
  Sex: Female
  Weight: 92.8 kg

DRUGS (2)
  1. ZOLOFT [Suspect]
     Active Substance: SERTRALINE HYDROCHLORIDE
     Indication: ANXIETY
     Dosage: 25 MG, 1X/DAY (1 CAPSULE BY MOUTH DAILY/25MG ONCE DAILY)
     Route: 048
     Dates: end: 20200113
  2. ZOLOFT [Suspect]
     Active Substance: SERTRALINE HYDROCHLORIDE
     Indication: DEPRESSION
     Dosage: 25 MG, 1X/DAY (1 CAPSULE BY MOUTH DAILY/25MG ONCE DAILY)
     Route: 048
     Dates: start: 20200114, end: 20200120

REACTIONS (2)
  - Weight decreased [Unknown]
  - Weight increased [Not Recovered/Not Resolved]
